FAERS Safety Report 13913442 (Version 1)
Quarter: 2017Q3

REPORT INFORMATION
  Report Type: Spontaneous
  Country: US (occurrence: US)
  Receive Date: 20170828
  Receipt Date: 20170828
  Transmission Date: 20171127
  Serious: No
  Sender: FDA-Public Use
  Company Number: US-ROCHE-1131732

PATIENT
  Age: 55 Year
  Sex: Female
  Weight: 91.6 kg

DRUGS (7)
  1. ESTRADERM [Concomitant]
     Active Substance: ESTRADIOL
  2. PREMARIN [Concomitant]
     Active Substance: ESTROGENS, CONJUGATED
     Route: 065
  3. ASPIRIN. [Concomitant]
     Active Substance: ASPIRIN
     Route: 065
  4. TESTODERM [Concomitant]
     Active Substance: TESTOSTERONE
  5. VITAMIN C [Concomitant]
     Active Substance: ASCORBIC ACID
  6. VITAMIN E [Concomitant]
     Active Substance: .ALPHA.-TOCOPHEROL
  7. NUTROPIN [Suspect]
     Active Substance: SOMATROPIN
     Indication: GROWTH HORMONE DEFICIENCY
     Dosage: INJECTION VOLUME 0.12 ML
     Route: 058

REACTIONS (7)
  - Neuralgia [Unknown]
  - Oedema peripheral [Unknown]
  - Skin irritation [Recovering/Resolving]
  - Vaginal discharge [Not Recovered/Not Resolved]
  - Peripheral swelling [Unknown]
  - Overdose [Unknown]
  - Breast tenderness [Unknown]

NARRATIVE: CASE EVENT DATE: 19990719
